FAERS Safety Report 6544559-7 (Version None)
Quarter: 2010Q1

REPORT INFORMATION
  Report Type: 
  Country: None (occurrence: None)
  Receive Date: 20100115
  Receipt Date: 20100107
  Transmission Date: 20100710
  Serious: Yes (Death, Life-Threatening, Hospitalization, Other)
  Sender: FDA-Public Use
  Company Number: 2009-04168

PATIENT
  Age: 69 Year
  Sex: Male
  Weight: 70 kg

DRUGS (7)
  1. VELCADE [Suspect]
     Indication: MULTIPLE MYELOMA
     Dosage: 2.3 MG, CYCLIC, INTRAVENOUS
     Route: 042
     Dates: start: 20090714, end: 20091002
  2. MELPHALAN HYDROCHLORIDE [Concomitant]
  3. PREDNISOLONE [Concomitant]
  4. ONDANSETRON [Concomitant]
  5. ACYCLOVIR [Concomitant]
  6. AVELOX [Concomitant]
  7. NEULASTA [Concomitant]

REACTIONS (12)
  - BLADDER TRANSITIONAL CELL CARCINOMA [None]
  - BLOOD CREATININE INCREASED [None]
  - GENERAL PHYSICAL HEALTH DETERIORATION [None]
  - HAEMOGLOBIN DECREASED [None]
  - LOWER GASTROINTESTINAL HAEMORRHAGE [None]
  - METASTASES TO BONE [None]
  - METASTASES TO LIVER [None]
  - MOBILITY DECREASED [None]
  - PNEUMONIA [None]
  - RECTAL HAEMORRHAGE [None]
  - THROMBOCYTOPENIA [None]
  - URETERIC OBSTRUCTION [None]
